FAERS Safety Report 5685913-5 (Version None)
Quarter: 2008Q1

REPORT INFORMATION
  Report Type: 
  Country: None (occurrence: None)
  Receive Date: 20080328
  Receipt Date: 20070827
  Transmission Date: 20080703
  Serious: No
  Sender: FDA-Public Use
  Company Number: US-BAYER-US-2007-031990

PATIENT
  Age: 21 Year
  Sex: Female
  Weight: 88 kg

DRUGS (2)
  1. MIRENA [Suspect]
     Indication: CONTRACEPTION
     Route: 015
     Dates: start: 20070816, end: 20070820
  2. EFFEXOR [Concomitant]
     Indication: POSTPARTUM DEPRESSION
     Dosage: UNIT DOSE: 75 MG
     Dates: start: 20070817

REACTIONS (2)
  - ABDOMINAL PAIN LOWER [None]
  - IUCD COMPLICATION [None]
